FAERS Safety Report 7790907-X (Version None)
Quarter: 2011Q3

REPORT INFORMATION
  Report Type: 
  Country: None (occurrence: None)
  Receive Date: 20110930
  Receipt Date: 20110928
  Transmission Date: 20111222
  Serious: Yes (Death, Hospitalization)
  Sender: FDA-Public Use
  Company Number: JP-BAYER-2011-086080

PATIENT
  Age: 42 Year
  Sex: Female
  Weight: 64 kg

DRUGS (14)
  1. INDOMETACIN [Concomitant]
     Dosage: UNK
     Route: 054
  2. PRIMPERAN TAB [Concomitant]
     Indication: NAUSEA
     Dosage: DAILY DOSE 10 MG
     Route: 042
     Dates: start: 20110909, end: 20110909
  3. LANSOPRAZOLE [Concomitant]
     Indication: PROPHYLAXIS AGAINST GASTROINTESTINAL ULCER
     Dosage: 15 MG, UNK
     Route: 048
     Dates: start: 20110817, end: 20110910
  4. SOLUTIONS AFFECTING THE ELECTROLYTE BALANCE [Concomitant]
     Indication: DECREASED APPETITE
  5. BETASERON [Suspect]
     Indication: MULTIPLE SCLEROSIS RELAPSE PROPHYLAXIS
     Dosage: 2 MIU, QOD
     Route: 058
     Dates: start: 20110907, end: 20110909
  6. SOLU-MEDROL [Concomitant]
     Dosage: DAILY DOSE 500 MG
     Route: 042
     Dates: start: 20110825, end: 20110827
  7. SOLUTIONS AFFECTING THE ELECTROLYTE BALANCE [Concomitant]
     Indication: PYREXIA
  8. MOTILIUM [Concomitant]
     Indication: NAUSEA
     Dosage: DAILY DOSE 30 MG
     Route: 048
     Dates: start: 20110909, end: 20110910
  9. STEROID ANTIBACTERIALS [Concomitant]
     Dosage: UNK
     Route: 065
  10. LOXONIN [Concomitant]
     Indication: PYREXIA
     Dosage: DAILY DOSE 60 MG
     Route: 048
     Dates: start: 20110907, end: 20110910
  11. SOLUTIONS AFFECTING THE ELECTROLYTE BALANCE [Concomitant]
     Indication: MALAISE
     Dosage: UNK
     Route: 042
     Dates: start: 20110909
  12. ALENDRONATE SODIUM [Concomitant]
     Indication: OSTEOPOROSIS PROPHYLAXIS
     Dosage: 35 MG, OW
     Route: 048
     Dates: start: 20110817, end: 20110910
  13. BICILLIN G [Concomitant]
     Indication: SYPHILIS
     Dosage: 3 G, QD
     Route: 048
     Dates: start: 20110428, end: 20110901
  14. PREDNISOLONE [Concomitant]
     Indication: MULTIPLE SCLEROSIS
     Dosage: 5 MG, QD
     Route: 048
     Dates: start: 20110817, end: 20110910

REACTIONS (8)
  - SHOCK [None]
  - DECREASED APPETITE [None]
  - RESPIRATORY FAILURE [None]
  - MALAISE [None]
  - PYREXIA [None]
  - BLOOD PRESSURE DECREASED [None]
  - ALTERED STATE OF CONSCIOUSNESS [None]
  - CARDIAC ARREST [None]
